FAERS Safety Report 12524104 (Version 1)
Quarter: 2016Q3

REPORT INFORMATION
  Report Type: Spontaneous
  Country: CA (occurrence: CA)
  Receive Date: 20160704
  Receipt Date: 20160704
  Transmission Date: 20161109
  Serious: Yes (Other)
  Sender: FDA-Public Use
  Company Number: CA-ROCHE-1784770

PATIENT
  Age: 75 Year
  Sex: Male

DRUGS (1)
  1. VISMODEGIB [Suspect]
     Active Substance: VISMODEGIB
     Indication: CHRONIC LYMPHOCYTIC LEUKAEMIA
     Route: 048

REACTIONS (7)
  - Fatigue [Unknown]
  - Alopecia [Unknown]
  - Squamous cell carcinoma [Unknown]
  - Myalgia [Unknown]
  - Weight decreased [Unknown]
  - Drug intolerance [Unknown]
  - Diarrhoea [Unknown]
